FAERS Safety Report 5537365-3 (Version None)
Quarter: 2007Q4

REPORT INFORMATION
  Report Type: 
  Country: None (occurrence: None)
  Receive Date: 20071207
  Receipt Date: 20071128
  Transmission Date: 20080405
  Serious: Yes (Congenital Anomaly)
  Sender: FDA-Public Use
  Company Number: A0648778A

PATIENT
  Age: 0 Year
  Sex: Female

DRUGS (1)
  1. PAXIL [Suspect]
     Indication: DRUG USE FOR UNKNOWN INDICATION
     Dosage: 20MG UNKNOWN
     Dates: start: 20020101

REACTIONS (12)
  - ASPIRATION [None]
  - ASPLENIA [None]
  - ATRIAL SEPTAL DEFECT [None]
  - CARDIAC MURMUR [None]
  - COARCTATION OF THE AORTA [None]
  - DRUG EXPOSURE DURING PREGNANCY [None]
  - INFERIOR VENA CAVAL OCCLUSION [None]
  - INFUSION SITE EXTRAVASATION [None]
  - INTESTINAL MALROTATION [None]
  - PATENT DUCTUS ARTERIOSUS [None]
  - SITUS INVERSUS [None]
  - THERMAL BURN [None]
